FAERS Safety Report 23701921 (Version 1)
Quarter: 2024Q2

REPORT INFORMATION
  Report Type: Spontaneous
  Country: NL (occurrence: NL)
  Receive Date: 20240403
  Receipt Date: 20240403
  Transmission Date: 20240715
  Serious: Yes (Other)
  Sender: FDA-Public Use
  Company Number: None

PATIENT
  Age: 56 Year
  Sex: Female
  Weight: 62 kg

DRUGS (1)
  1. METHOTREXATE [Suspect]
     Active Substance: METHOTREXATE
     Indication: Rheumatoid arthritis
     Dosage: 10 PIECES ONCE PER WEEK; METHOTREXATE / BRAND NAME NOT SPECIFIED
     Route: 065
     Dates: start: 20030501

REACTIONS (1)
  - Neuropathy peripheral [Not Recovered/Not Resolved]
